FAERS Safety Report 10788346 (Version 2)
Quarter: 2015Q1

REPORT INFORMATION
  Report Type: Spontaneous
  Country: US (occurrence: None)
  Receive Date: 20150210
  Receipt Date: 20150312
  Transmission Date: 20150721
  Serious: Yes (Hospitalization)
  Sender: FDA-Public Use
  Company Number: COM-002888

PATIENT
  Age: 63 Year
  Sex: Female
  Weight: 90.72 kg

DRUGS (1)
  1. DIPHENHYDRAMINE [Suspect]
     Active Substance: DIPHENHYDRAMINE
     Indication: SLEEP DISORDER
     Dosage: **1 SOFTGEL, ONCE AT BEDTIME, ORAL**
     Route: 048
     Dates: start: 20141001

REACTIONS (4)
  - Eye pruritus [None]
  - Visual impairment [None]
  - Vision blurred [None]
  - Self-medication [None]

NARRATIVE: CASE EVENT DATE: 20141001
